FAERS Safety Report 22647814 (Version 1)
Quarter: 2023Q2

REPORT INFORMATION
  Report Type: Other
  Country: FR (occurrence: FR)
  Receive Date: 20230628
  Receipt Date: 20230628
  Transmission Date: 20230722
  Serious: Yes (Congenital Anomaly)
  Sender: FDA-Public Use
  Company Number: FR-002147023-NVSC2023FR134540

PATIENT

DRUGS (4)
  1. TRASTUZUMAB [Suspect]
     Active Substance: TRASTUZUMAB
     Indication: Product used for unknown indication
     Dosage: MATERNAL EXPOSURE DURING PREGNANCY: INITIATED AT 16 WG TO 29 WG
     Route: 064
  2. CYCLOPHOSPHAMIDE [Suspect]
     Active Substance: CYCLOPHOSPHAMIDE
     Indication: Product used for unknown indication
     Dosage: MATERNAL EXPOSURE DURING PREGNANCY: UNK, CYCLIC (FROM 4 WG 3 CYCLES, UNTIL 10 WG)
     Route: 064
  3. PACLITAXEL [Suspect]
     Active Substance: PACLITAXEL
     Indication: Product used for unknown indication
     Dosage: MATERNAL EXPOSURE DURING PREGNANCY: WEEKLY INJECTION (INITIATED AT 16 WG TO 29 WG)
     Route: 064
  4. EPIRUBICIN [Suspect]
     Active Substance: EPIRUBICIN
     Indication: Product used for unknown indication
     Dosage: MATERNAL EXPOSURE DURING PREGNANCY: UNK, CYCLIC (FROM 4 WG 3 CYCLES, UNTIL 10 WG)
     Route: 064

REACTIONS (4)
  - Cleft palate [Unknown]
  - Pulmonary hypoplasia [Unknown]
  - Congenital renal disorder [Unknown]
  - Foetal exposure during pregnancy [Unknown]
